FAERS Safety Report 20590272 (Version 1)
Quarter: 2022Q1

REPORT INFORMATION
  Report Type: Report from Study
  Country: CA (occurrence: CA)
  Receive Date: 20220314
  Receipt Date: 20220314
  Transmission Date: 20220423
  Serious: Yes (Other)
  Sender: FDA-Public Use
  Company Number: CA-JNJFOC-20220322645

PATIENT
  Age: 20 Year
  Sex: Male
  Weight: 53.9 kg

DRUGS (2)
  1. REMICADE [Suspect]
     Active Substance: INFLIXIMAB
     Indication: Crohn^s disease
     Route: 042
  2. PREDNISONE [Concomitant]
     Active Substance: PREDNISONE
     Indication: Product used for unknown indication
     Dosage: RESTARTED STEROIDS 30 MG ONCE PER DAY A MONTH AGO (FEB/2022)
     Route: 065

REACTIONS (1)
  - Clostridium difficile infection [Unknown]
